FAERS Safety Report 5057979-7 (Version None)
Quarter: 2006Q3

REPORT INFORMATION
  Report Type: 
  Country: None (occurrence: None)
  Receive Date: 20060721
  Receipt Date: 20060428
  Transmission Date: 20061208
  Serious: No
  Sender: FDA-Public Use
  Company Number: US-GLAXOSMITHKLINE-A0603643A

PATIENT
  Age: 41 Year
  Sex: Male

DRUGS (7)
  1. AVANDIA [Suspect]
     Dosage: 8MG PER DAY
     Route: 048
     Dates: start: 20060412
  2. METFORMIN [Concomitant]
  3. MAXZIDE [Concomitant]
  4. LOPRESSOR [Concomitant]
  5. ALLOPURINOL [Concomitant]
  6. NIFEDIPINE [Concomitant]
  7. ENALAPRIL MALEATE [Concomitant]

REACTIONS (1)
  - BLOOD GLUCOSE INCREASED [None]
